FAERS Safety Report 14787500 (Version 1)
Quarter: 2018Q2

REPORT INFORMATION
  Report Type: Spontaneous
  Country: US (occurrence: US)
  Receive Date: 20180421
  Receipt Date: 20180421
  Transmission Date: 20180711
  Serious: Yes (Hospitalization)
  Sender: FDA-Public Use
  Company Number: US-ABBVIE-18S-163-2322718-00

PATIENT
  Age: 84 Year
  Sex: Female

DRUGS (2)
  1. LYRICA [Suspect]
     Active Substance: PREGABALIN
     Indication: DIABETIC NEUROPATHY
     Route: 048
     Dates: start: 2016
  2. BIAXIN [Suspect]
     Active Substance: CLARITHROMYCIN
     Indication: SINUSITIS
     Route: 048
     Dates: start: 20001228, end: 200101

REACTIONS (11)
  - Renal disorder [Unknown]
  - Blood creatinine increased [Unknown]
  - Diabetes mellitus [Recovering/Resolving]
  - Adverse drug reaction [Unknown]
  - Asthenia [Recovered/Resolved]
  - Clostridium difficile infection [Recovering/Resolving]
  - Fall [Recovered/Resolved]
  - Head injury [Recovered/Resolved]
  - Gastric disorder [Recovered/Resolved]
  - Hypertension [Recovering/Resolving]
  - Weight decreased [Unknown]

NARRATIVE: CASE EVENT DATE: 200012
